FAERS Safety Report 7626325-4 (Version None)
Quarter: 2011Q3

REPORT INFORMATION
  Report Type: 
  Country: None (occurrence: None)
  Receive Date: 20110721
  Receipt Date: 20110712
  Transmission Date: 20111222
  Serious: Yes (Hospitalization)
  Sender: FDA-Public Use
  Company Number: NL-JNJFOC-20110703749

PATIENT
  Sex: Female
  Weight: 60 kg

DRUGS (11)
  1. DOXORUBICIN HCL [Suspect]
     Indication: BREAST CANCER METASTATIC
     Route: 042
     Dates: start: 20101116, end: 20110308
  2. VENTOLIN HFA [Concomitant]
     Dosage: 500/400 U
     Route: 065
  3. DOXORUBICIN HCL [Suspect]
     Indication: BREAST CANCER RECURRENT
     Route: 042
     Dates: start: 20101116, end: 20110308
  4. OMEPRAZOLE [Concomitant]
     Route: 065
     Dates: end: 20110313
  5. XELODA [Suspect]
     Indication: BREAST CANCER METASTATIC
     Route: 048
  6. ORAMORPH SR [Concomitant]
     Dosage: 500/400 U
     Route: 065
  7. FENTANYL [Concomitant]
     Dosage: 500/400 U
     Route: 065
  8. XELODA [Suspect]
     Indication: BREAST CANCER RECURRENT
     Route: 048
  9. METOCLOPRAMIDE [Concomitant]
     Route: 065
  10. CALCIUM CARBONATE [Concomitant]
     Dosage: 500/400 U
     Route: 065
     Dates: end: 20110324
  11. AMLODIPINE [Concomitant]
     Dosage: 500/400 U
     Route: 065
     Dates: end: 20110321

REACTIONS (2)
  - CEREBRAL ISCHAEMIA [None]
  - MALAISE [None]
